FAERS Safety Report 4307395-8 (Version None)
Quarter: 2004Q1

REPORT INFORMATION
  Report Type: 
  Country: None (occurrence: None)
  Receive Date: 20040226
  Receipt Date: 20040216
  Transmission Date: 20041129
  Serious: Yes (Disabling, Other)
  Sender: FDA-Public Use
  Company Number: 2004199604GB

PATIENT
  Age: 71 Year
  Sex: Male
  Weight: 76 kg

DRUGS (11)
  1. CELEBREX [Suspect]
     Indication: RHEUMATOID ARTHRITIS
     Dosage: 100 MG, QD, ORAL
     Route: 048
     Dates: start: 20030312, end: 20030326
  2. LISINOPRIL [Concomitant]
  3. FRUSEMIDE [Concomitant]
  4. DEPONIT [Concomitant]
  5. OMEPRAZOLE [Concomitant]
  6. GLICLAZIDE (GLICLAZIDE) [Concomitant]
  7. METFORMIN [Concomitant]
  8. PREDNISOLONE [Concomitant]
  9. ASPIRIN [Concomitant]
  10. AMOXICILLIN AND CLAVULANATE POTASSIUM [Concomitant]
  11. ADIZEM-SLOW RELEASE [Concomitant]

REACTIONS (3)
  - DIFFICULTY IN WALKING [None]
  - DYSARTHRIA [None]
  - JOINT SWELLING [None]
